FAERS Safety Report 6912624-8 (Version None)
Quarter: 2010Q3

REPORT INFORMATION
  Report Type: 
  Country: None (occurrence: None)
  Receive Date: 20100806
  Receipt Date: 20080825
  Transmission Date: 20110219
  Serious: Yes (Other)
  Sender: FDA-Public Use
  Company Number: US-PFIZER INC-2008071532

PATIENT
  Sex: Male

DRUGS (6)
  1. LOPID [Suspect]
     Indication: BLOOD CHOLESTEROL
  2. LOPID [Suspect]
     Indication: BLOOD TRIGLYCERIDES
  3. ACETYLSALICYLIC ACID SRT [Suspect]
  4. LISINOPRIL [Suspect]
  5. FLEXERIL [Suspect]
  6. DRUG, UNSPECIFIED [Concomitant]

REACTIONS (3)
  - ANGIOEDEMA [None]
  - OEDEMA MOUTH [None]
  - SWOLLEN TONGUE [None]
